FAERS Safety Report 18034950 (Version 1)
Quarter: 2020Q3

REPORT INFORMATION
  Report Type: Spontaneous
  Country: US (occurrence: US)
  Receive Date: 20200716
  Receipt Date: 20200716
  Transmission Date: 20201103
  Serious: Yes (Death)
  Sender: FDA-Public Use
  Company Number: None

PATIENT
  Age: 84 Year
  Sex: Male
  Weight: 88.4 kg

DRUGS (16)
  1. ASCORBIC ACID 500 MG PO DAILY WITH FOOD [Concomitant]
     Dates: start: 20200703, end: 20200710
  2. ZINC SULFATE 220 MG PO DAILY [Concomitant]
     Dates: start: 20200703, end: 20200710
  3. APIXABAN 5 MG PO BID [Concomitant]
     Dates: start: 20200703, end: 20200707
  4. METOPROLOL 12.5 MG PO BID [Concomitant]
     Dates: start: 20200707, end: 20200710
  5. CHOLECALCIFEROL 1,000 IU PO DAILY [Concomitant]
     Dates: start: 20200703, end: 20200710
  6. AZITHROMYCIN 500 MG PO Q24H [Concomitant]
     Dates: start: 20200705, end: 20200707
  7. ENOXAPARIN 90 MG SQ Q12H [Concomitant]
     Dates: start: 20200708, end: 20200709
  8. ESCITALOPRAM 10 MG PO DAILY [Concomitant]
     Dates: start: 20200703, end: 20200710
  9. FENTANYL 25 MCG IV Q1HR PRN DYSPENA [Concomitant]
     Dates: start: 20200703, end: 20200710
  10. REMDESIVIR. [Suspect]
     Active Substance: REMDESIVIR
     Indication: COVID-19 PNEUMONIA
     Route: 042
     Dates: start: 20200706, end: 20200709
  11. DEXAMETHAXONE 6 MG IV DAILY [Concomitant]
     Dates: start: 20200703, end: 20200710
  12. GUAIFENESIN ER 600 MG PO BID [Concomitant]
     Dates: start: 20200707, end: 20200710
  13. DAPTOMYCIN 450 MG IV Q24H [Concomitant]
     Dates: start: 20200706, end: 20200709
  14. LEVOTHYROXINE 25 MCG PO DAILY [Concomitant]
     Dates: start: 20200703, end: 20200710
  15. SODIUM BICARBONATE 150 MEQ/1000 ML D5 IV SOLUTION 50 ML/HR [Concomitant]
     Dates: start: 20200708, end: 20200709
  16. CEFTRIAXONE 1 GM IV DAILY [Concomitant]
     Dates: start: 20200704, end: 20200709

REACTIONS (2)
  - Hepatic failure [None]
  - Drug interaction [None]

NARRATIVE: CASE EVENT DATE: 20200709
